FAERS Safety Report 8760933 (Version 2)
Quarter: 2012Q4

REPORT INFORMATION
  Report Type: 
  Country: AU (occurrence: AU)
  Receive Date: 20120830
  Receipt Date: 20120926
  Transmission Date: 20130627
  Serious: Yes (Hospitalization)
  Sender: FDA-Public Use
  Company Number: PHHY2012AU074796

PATIENT
  Age: 40 Year
  Sex: Male

DRUGS (4)
  1. CLOZARIL [Suspect]
     Indication: SCHIZOPHRENIA
     Dosage: 100 mg mane, 300 mg nocte
     Route: 048
     Dates: start: 20110714
  2. PANTOPRAZOLE [Concomitant]
     Dosage: 40 mg, in the morning
     Route: 048
  3. BENZOTROPINE [Concomitant]
     Dosage: 1 mg, BID
     Route: 048
  4. VENLAFAXINE [Concomitant]
     Dosage: 375 mg, in the morning
     Route: 048

REACTIONS (3)
  - Respiratory failure [Recovered/Resolved]
  - Respiratory distress [Recovered/Resolved]
  - Respiratory tract infection [Recovered/Resolved]
